FAERS Safety Report 11405341 (Version 2)
Quarter: 2015Q3

REPORT INFORMATION
  Report Type: Spontaneous
  Country: US (occurrence: US)
  Receive Date: 20150821
  Receipt Date: 20150825
  Transmission Date: 20151125
  Serious: Yes (Hospitalization)
  Sender: FDA-Public Use
  Company Number: US-PFIZER INC-2015275790

PATIENT
  Age: 26 Year
  Sex: Female

DRUGS (1)
  1. NORINYL [Suspect]
     Active Substance: ETHINYL ESTRADIOL\MESTRANOL\NORETHINDRONE
     Indication: CONTRACEPTION
     Dosage: UNK
     Route: 048

REACTIONS (3)
  - Dyspnoea [Not Recovered/Not Resolved]
  - Syncope [Not Recovered/Not Resolved]
  - Pulmonary hypertension [Unknown]
